FAERS Safety Report 18971796 (Version 1)
Quarter: 2021Q1

REPORT INFORMATION
  Report Type: Report from Study
  Country: CA (occurrence: CA)
  Receive Date: 20210305
  Receipt Date: 20210305
  Transmission Date: 20210420
  Serious: Yes (Other)
  Sender: FDA-Public Use
  Company Number: CA-JNJFOC-20210302145

PATIENT
  Age: 43 Year
  Sex: Male
  Weight: 91.5 kg

DRUGS (1)
  1. REMICADE [Suspect]
     Active Substance: INFLIXIMAB
     Indication: COLITIS ULCERATIVE
     Route: 042
     Dates: start: 20140730

REACTIONS (2)
  - Erectile dysfunction [Recovering/Resolving]
  - Fungal infection [Not Recovered/Not Resolved]
